FAERS Safety Report 19608474 (Version 1)
Quarter: 2021Q3

REPORT INFORMATION
  Report Type: Spontaneous
  Country: US (occurrence: US)
  Receive Date: 20210723
  Receipt Date: 20210723
  Transmission Date: 20211014
  Serious: Yes (Other)
  Sender: FDA-Public Use
  Company Number: None

PATIENT
  Age: 20 Year
  Sex: Female
  Weight: 67.5 kg

DRUGS (2)
  1. VITAMIN D [Concomitant]
     Active Substance: VITAMIN D NOS
  2. METHOCARBAMOL (500MG) TABLETS [Suspect]
     Active Substance: METHOCARBAMOL
     Indication: MUSCLE SPASMS
     Dosage: ?          QUANTITY:40 TABLET(S);??
     Route: 048
     Dates: start: 20210718, end: 20210718

REACTIONS (4)
  - Amnesia [None]
  - Suicidal ideation [None]
  - Gait disturbance [None]
  - Sluggishness [None]

NARRATIVE: CASE EVENT DATE: 20210718
